FAERS Safety Report 8365590-5 (Version None)
Quarter: 2012Q2

REPORT INFORMATION
  Report Type: 
  Country: None (occurrence: None)
  Receive Date: 20120516
  Receipt Date: 20120510
  Transmission Date: 20120825
  Serious: Yes (Hospitalization)
  Sender: FDA-Public Use
  Company Number: SG-MERCK-1205USA02025

PATIENT
  Sex: Male

DRUGS (1)
  1. INVANZ [Suspect]
     Route: 030
     Dates: start: 20120504, end: 20120507

REACTIONS (2)
  - CONFUSIONAL STATE [None]
  - CIRCADIAN RHYTHM SLEEP DISORDER [None]
